FAERS Safety Report 5052584-0 (Version None)
Quarter: 2006Q3

REPORT INFORMATION
  Report Type: 
  Country: None (occurrence: None)
  Receive Date: 20060717
  Receipt Date: 20060525
  Transmission Date: 20061208
  Serious: Yes (Hospitalization)
  Sender: FDA-Public Use
  Company Number: JP-GLAXOSMITHKLINE-B0425967A

PATIENT
  Age: 68 Year
  Sex: Female

DRUGS (2)
  1. TOPOTECAN [Suspect]
     Indication: OVARIAN CANCER
     Dosage: 1.2MGM2 PER DAY
     Dates: start: 20060417, end: 20060421
  2. ZOLPIDEM TARTRATE [Concomitant]
     Indication: INSOMNIA

REACTIONS (3)
  - ABDOMINAL DISTENSION [None]
  - ILEUS [None]
  - VOMITING [None]
